FAERS Safety Report 25390269 (Version 1)
Quarter: 2025Q2

REPORT INFORMATION
  Report Type: Spontaneous
  Country: FR (occurrence: FR)
  Receive Date: 20250603
  Receipt Date: 20250603
  Transmission Date: 20250717
  Serious: Yes (Hospitalization)
  Sender: PFIZER
  Company Number: None

PATIENT
  Age: 13 Year
  Sex: Female
  Weight: 38 kg

DRUGS (3)
  1. CLINDAMYCIN HYDROCHLORIDE [Suspect]
     Active Substance: CLINDAMYCIN HYDROCHLORIDE
     Indication: Infection
     Dosage: 600 MG, 3X/DAY; FREQ:8 H;
     Route: 048
     Dates: start: 202503
  2. ZONISAMIDE [Suspect]
     Active Substance: ZONISAMIDE
     Indication: Epilepsy
     Dosage: 100 MG, 2X/DAY; FREQ:12 H;
     Route: 048
     Dates: start: 20250316
  3. OMNITROPE [Suspect]
     Active Substance: SOMATROPIN
     Indication: Developmental delay
     Dosage: 10 MG, 1X/DAY
     Route: 048
     Dates: start: 202409

REACTIONS (2)
  - Anaemia [Not Recovered/Not Resolved]
  - Off label use [Unknown]

NARRATIVE: CASE EVENT DATE: 20250301
